FAERS Safety Report 6562164-3 (Version None)
Quarter: 2010Q1

REPORT INFORMATION
  Report Type: 
  Country: None (occurrence: None)
  Receive Date: 20100130
  Receipt Date: 20091103
  Transmission Date: 20100710
  Serious: No
  Sender: FDA-Public Use
  Company Number: US-ABBOTT-09P-163-0607052-00

PATIENT
  Sex: Female
  Weight: 123.94 kg

DRUGS (2)
  1. HUMIRA [Suspect]
     Indication: CROHN'S DISEASE
     Dates: start: 20091022
  2. HUMIRA [Suspect]
     Dates: start: 20091105

REACTIONS (2)
  - MALAISE [None]
  - PYREXIA [None]
